FAERS Safety Report 10433480 (Version 2)
Quarter: 2014Q4

REPORT INFORMATION
  Report Type: Spontaneous
  Country: US (occurrence: US)
  Receive Date: 20140905
  Receipt Date: 20141027
  Transmission Date: 20150528
  Serious: No
  Sender: FDA-Public Use
  Company Number: US-PFIZER INC-2014246799

PATIENT
  Age: 8 Year
  Sex: Female
  Weight: 20.41 kg

DRUGS (3)
  1. GENOTROPIN [Suspect]
     Active Substance: SOMATROPIN
     Indication: GROWTH HORMONE DEFICIENCY
     Dosage: 1 MG, 1X/DAY
     Route: 058
     Dates: start: 2013, end: 20140902
  2. FLOVENT [Concomitant]
     Active Substance: FLUTICASONE PROPIONATE
     Indication: ASTHMA
     Dosage: UNK, AS NEEDED
  3. ALBUTEROL. [Concomitant]
     Active Substance: ALBUTEROL
     Indication: ASTHMA
     Dosage: UNK, AS NEEDED

REACTIONS (1)
  - Seasonal allergy [Unknown]

NARRATIVE: CASE EVENT DATE: 201402
